FAERS Safety Report 5523421-2 (Version None)
Quarter: 2007Q4

REPORT INFORMATION
  Report Type: 
  Country: None (occurrence: None)
  Receive Date: 20071121
  Receipt Date: 20071112
  Transmission Date: 20080405
  Serious: Yes (Hospitalization, Other)
  Sender: FDA-Public Use
  Company Number: CA-AMGEN-KDL249484

PATIENT
  Sex: Male
  Weight: 73 kg

DRUGS (3)
  1. ENBREL [Suspect]
     Indication: PSORIATIC ARTHROPATHY
     Route: 058
     Dates: start: 20070807, end: 20071015
  2. VOLTAREN [Concomitant]
  3. METHOTREXATE [Concomitant]

REACTIONS (3)
  - DEMYELINATION [None]
  - PARAESTHESIA [None]
  - VISUAL DISTURBANCE [None]
